FAERS Safety Report 20077853 (Version 2)
Quarter: 2021Q4

REPORT INFORMATION
  Report Type: Spontaneous
  Country: DE (occurrence: DE)
  Receive Date: 20211116
  Receipt Date: 20211119
  Transmission Date: 20220303
  Serious: Yes (Hospitalization)
  Sender: FDA-Public Use
  Company Number: DE-ADRED-07123-01

PATIENT
  Age: 63 Year
  Sex: Female

DRUGS (9)
  1. PACLITAXEL [Suspect]
     Active Substance: PACLITAXEL
     Indication: Product used for unknown indication
     Dosage: SCHEMA
  2. CARBOPLATIN [Suspect]
     Active Substance: CARBOPLATIN
     Indication: Product used for unknown indication
     Dosage: SCHEMA
  3. BISOPROLOL [Concomitant]
     Active Substance: BISOPROLOL
     Dosage: 2.5 MG, 1-0-0-0
  4. ESOMEPRAZOL                        /01479301/ [Concomitant]
     Dosage: 20 MG, 0-1-0-0
  5. CANDESARTAN CILEXETIL\HYDROCHLOROTHIAZIDE [Concomitant]
     Active Substance: CANDESARTAN CILEXETIL\HYDROCHLOROTHIAZIDE
     Dosage: 16|12.5 MG, 1-0-0-0
  6. BUDESONIDE [Concomitant]
     Active Substance: BUDESONIDE
     Dosage: 200 MICROGRAM, QD
  7. KALIUMIODID BC [Concomitant]
     Dosage: 50 MICROGRAM, QD
  8. SERTRALIN                          /01011401/ [Concomitant]
     Dosage: 50 MILLIGRAM, QD
  9. MAPROTILINE [Concomitant]
     Active Substance: MAPROTILINE
     Dosage: 75 MILLIGRAM, QD,  0-0-1-0

REACTIONS (9)
  - Aphasia [Unknown]
  - Anaemia [Unknown]
  - Hemiparesis [Unknown]
  - General physical health deterioration [Unknown]
  - Cerebral infarction [Unknown]
  - Language disorder [Unknown]
  - Restlessness [Unknown]
  - Disorientation [Unknown]
  - Weight increased [Unknown]
